FAERS Safety Report 21965576 (Version 2)
Quarter: 2023Q2

REPORT INFORMATION
  Report Type: Spontaneous
  Country: US (occurrence: US)
  Receive Date: 20230208
  Receipt Date: 20230622
  Transmission Date: 20230721
  Serious: No
  Sender: FDA-Public Use
  Company Number: US-BRISTOL-MYERS SQUIBB COMPANY-2023-018532

PATIENT
  Age: 76 Year
  Sex: Male

DRUGS (1)
  1. OPDUALAG [Suspect]
     Active Substance: NIVOLUMAB\RELATLIMAB-RMBW
     Indication: Plasma cell myeloma
     Dosage: DOSE : 480/160;     FREQ : EVERY 28 DAYS
     Route: 042

REACTIONS (1)
  - Adverse event [Unknown]
